FAERS Safety Report 21734742 (Version 1)
Quarter: 2022Q4

REPORT INFORMATION
  Report Type: Spontaneous
  Country: CN (occurrence: CN)
  Receive Date: 20221215
  Receipt Date: 20221215
  Transmission Date: 20230113
  Serious: Yes (Other)
  Sender: FDA-Public Use
  Company Number: None

PATIENT
  Age: 44 Year
  Sex: Female
  Weight: 51 kg

DRUGS (8)
  1. CYCLOPHOSPHAMIDE [Suspect]
     Active Substance: CYCLOPHOSPHAMIDE
     Indication: Breast cancer female
     Dosage: 0.9 G, ONCE DAILY, DILUTED WITH 250 ML OF SODIUM CHLORIDE
     Route: 041
     Dates: start: 20221112, end: 20221112
  2. CYCLOPHOSPHAMIDE [Suspect]
     Active Substance: CYCLOPHOSPHAMIDE
     Indication: Chemotherapy
     Dosage: 0.9 G, ONCE DAILY, DILUTED WITH 250 ML OF SODIUM CHLORIDE, IVGTT
     Route: 041
     Dates: start: 20221201, end: 20221201
  3. SODIUM CHLORIDE [Suspect]
     Active Substance: SODIUM CHLORIDE
     Indication: Medication dilution
     Dosage: 100 ML, ONCE DAILY, USED TO DILUTE 130 MG EPIRUBICIN HYDROCHLORIDE IVGTT
     Route: 041
     Dates: start: 20221201, end: 20221201
  4. SODIUM CHLORIDE [Suspect]
     Active Substance: SODIUM CHLORIDE
     Dosage: 250 ML, ONCE DAILY, USED TO DILUTE 0.9 G OF CYCLOPHOSPHAMIDE, IVGTT
     Route: 041
     Dates: start: 20221201, end: 20221201
  5. EPIRUBICIN HYDROCHLORIDE [Suspect]
     Active Substance: EPIRUBICIN HYDROCHLORIDE
     Indication: Breast cancer female
     Dosage: 130 MG, ONCE DAILY, DILUTED WITH 100 ML OF SODIUM CHLORIDE
     Route: 041
     Dates: start: 20221112, end: 20221112
  6. EPIRUBICIN HYDROCHLORIDE [Suspect]
     Active Substance: EPIRUBICIN HYDROCHLORIDE
     Indication: Chemotherapy
     Dosage: 130 MG, ONCE DAILY, DILUTED WITH 100 ML OF SODIUM CHLORIDE, IV GTT
     Route: 041
     Dates: start: 20221201, end: 20221201
  7. SODIUM CHLORIDE [Suspect]
     Active Substance: SODIUM CHLORIDE
     Indication: Breast cancer female
     Dosage: 250 ML, QD, USED TO DILUTE 0.9G OF CYCLOPHOSPHAMIDE
     Route: 041
     Dates: start: 20221112, end: 20221112
  8. SODIUM CHLORIDE [Suspect]
     Active Substance: SODIUM CHLORIDE
     Indication: Chemotherapy
     Dosage: 100 ML, QD, USED TO DILUTE 130 MG EPIRUBICIN HYDROCHLORIDE
     Route: 041
     Dates: start: 20221112, end: 20221112

REACTIONS (6)
  - Myelosuppression [Recovering/Resolving]
  - Asthenia [Recovering/Resolving]
  - Dizziness [Recovering/Resolving]
  - Abdominal distension [Unknown]
  - Nausea [Recovering/Resolving]
  - Decreased appetite [Unknown]

NARRATIVE: CASE EVENT DATE: 20221201
